FAERS Safety Report 11397555 (Version 1)
Quarter: 2015Q3

REPORT INFORMATION
  Report Type: Report from Study
  Country: US (occurrence: US)
  Receive Date: 20150819
  Receipt Date: 20150819
  Transmission Date: 20151125
  Serious: No
  Sender: FDA-Public Use
  Company Number: US-CELGENEUS-USA-2015074659

PATIENT

DRUGS (2)
  1. STYRODS [Suspect]
     Active Substance: UNSPECIFIED INGREDIENT
     Indication: PRODUCT USED FOR UNKNOWN INDICATION
     Route: 065
  2. REVLIMID [Suspect]
     Active Substance: LENALIDOMIDE
     Indication: PRODUCT USED FOR UNKNOWN INDICATION
     Route: 048

REACTIONS (8)
  - Productive cough [Unknown]
  - Weight decreased [Unknown]
  - Unevaluable event [Unknown]
  - Malaise [Unknown]
  - Aphonia [Unknown]
  - Tremor [Unknown]
  - Dizziness [Unknown]
  - Fatigue [Unknown]
